FAERS Safety Report 21039957 (Version 1)
Quarter: 2022Q3

REPORT INFORMATION
  Report Type: Report from Study
  Country: CO (occurrence: CO)
  Receive Date: 20220704
  Receipt Date: 20220704
  Transmission Date: 20221026
  Serious: Yes (Other)
  Sender: FDA-Public Use
  Company Number: CO-ABBVIE-22K-036-4378540-00

PATIENT
  Sex: Female
  Weight: 56 kg

DRUGS (3)
  1. HUMIRA [Suspect]
     Active Substance: ADALIMUMAB
     Indication: Uveitis
     Dosage: CITRATE FREE
     Route: 058
     Dates: start: 20200420, end: 20211115
  2. PREDNISOLONE [Concomitant]
     Active Substance: PREDNISOLONE
     Indication: Uveitis
     Route: 048
  3. RANIBIZUMAB [Concomitant]
     Active Substance: RANIBIZUMAB
     Indication: Product used for unknown indication
     Route: 031

REACTIONS (16)
  - Eye disorder [Not Recovered/Not Resolved]
  - Mobility decreased [Not Recovered/Not Resolved]
  - Visual impairment [Not Recovered/Not Resolved]
  - Pain [Not Recovered/Not Resolved]
  - Limb discomfort [Not Recovered/Not Resolved]
  - Osteoporosis [Not Recovered/Not Resolved]
  - Drug tolerance [Unknown]
  - Head discomfort [Not Recovered/Not Resolved]
  - Rotator cuff syndrome [Not Recovered/Not Resolved]
  - Immune system disorder [Not Recovered/Not Resolved]
  - Osteoarthritis [Not Recovered/Not Resolved]
  - Vertigo [Not Recovered/Not Resolved]
  - Stress [Not Recovered/Not Resolved]
  - Discomfort [Not Recovered/Not Resolved]
  - Bone pain [Not Recovered/Not Resolved]
  - Eye pain [Not Recovered/Not Resolved]

NARRATIVE: CASE EVENT DATE: 20210101
